FAERS Safety Report 9832795 (Version 1)
Quarter: 2014Q1

REPORT INFORMATION
  Report Type: Spontaneous
  Country: JP (occurrence: JP)
  Receive Date: 20140121
  Receipt Date: 20140121
  Transmission Date: 20141002
  Serious: Yes (Hospitalization)
  Sender: FDA-Public Use
  Company Number: JP-GLAXOSMITHKLINE-B0952164A

PATIENT
  Age: 78 Year
  Sex: Female

DRUGS (9)
  1. REQUIP [Suspect]
     Indication: PARKINSON^S DISEASE
     Dosage: 8MG PER DAY
     Route: 048
     Dates: start: 20130708, end: 2013
  2. REQUIP [Suspect]
     Indication: PARKINSON^S DISEASE
     Dosage: 6MG PER DAY
     Route: 048
     Dates: start: 2013, end: 20131122
  3. REQUIP [Suspect]
     Indication: PARKINSON^S DISEASE
     Dosage: 4MG PER DAY
     Route: 048
     Dates: start: 20131123, end: 20131126
  4. REQUIP [Suspect]
     Indication: PARKINSON^S DISEASE
     Dosage: 2MG PER DAY
     Route: 048
     Dates: start: 20131127, end: 20131129
  5. REQUIP [Suspect]
     Indication: PARKINSON^S DISEASE
     Dosage: 2MG THREE TIMES PER DAY
     Route: 048
     Dates: start: 20130624, end: 20130702
  6. REQUIP [Suspect]
     Indication: PARKINSON^S DISEASE
     Dosage: 3MG THREE TIMES PER DAY
     Route: 048
     Dates: start: 20130703, end: 20130707
  7. MENESIT [Concomitant]
     Indication: PARKINSONISM
     Dosage: 100MG THREE TIMES PER DAY
     Route: 048
     Dates: start: 20101008
  8. RIVOTRIL [Concomitant]
     Indication: PARKINSONISM
     Dosage: .5MG PER DAY
     Route: 048
     Dates: start: 20091023
  9. EXCEGRAN [Concomitant]
     Indication: PARKINSONISM
     Dosage: 50MG PER DAY
     Route: 048
     Dates: start: 20100709

REACTIONS (8)
  - Hallucination [Recovered/Resolved]
  - Stasis dermatitis [Recovered/Resolved]
  - Oedema peripheral [Recovered/Resolved]
  - Elevated mood [Recovered/Resolved]
  - Hallucination, visual [Recovered/Resolved]
  - Somatic hallucination [Unknown]
  - Bundle branch block right [Unknown]
  - Hallucination, visual [Recovered/Resolved]
